FAERS Safety Report 19065739 (Version 1)
Quarter: 2021Q1

REPORT INFORMATION
  Report Type: Spontaneous
  Country: JP (occurrence: JP)
  Receive Date: 20210327
  Receipt Date: 20210327
  Transmission Date: 20210420
  Serious: Yes (Other)
  Sender: FDA-Public Use
  Company Number: JP-ORGANON-O2103JPN000497J

PATIENT
  Sex: Female

DRUGS (2)
  1. ZETIA [Suspect]
     Active Substance: EZETIMIBE
     Dosage: 5 MILLIGRAM, QD
     Route: 048
     Dates: start: 20210317, end: 20210319
  2. ZETIA [Suspect]
     Active Substance: EZETIMIBE
     Indication: BLOOD CHOLESTEROL INCREASED
     Dosage: 10 MILLIGRAM, QD
     Route: 048
     Dates: start: 2020, end: 20210217

REACTIONS (9)
  - Middle insomnia [Recovering/Resolving]
  - Palpitations [Recovered/Resolved]
  - Palpitations [Recovering/Resolving]
  - Stomatitis [Recovered/Resolved]
  - Chest pain [Recovered/Resolved]
  - Chest pain [Recovering/Resolving]
  - Malaise [Recovering/Resolving]
  - Angina pectoris [Recovering/Resolving]
  - Muscle spasms [Recovered/Resolved]

NARRATIVE: CASE EVENT DATE: 20210217
